FAERS Safety Report 21625508 (Version 1)
Quarter: 2022Q4

REPORT INFORMATION
  Report Type: Spontaneous
  Country: FR (occurrence: FR)
  Receive Date: 20221122
  Receipt Date: 20221122
  Transmission Date: 20230113
  Serious: Yes (Hospitalization)
  Sender: FDA-Public Use
  Company Number: FR-AFSSAPS-MP20223349

PATIENT
  Age: 13 Year
  Sex: Female
  Weight: 65 kg

DRUGS (6)
  1. OLANZAPINE [Suspect]
     Active Substance: OLANZAPINE
     Indication: Toxicity to various agents
     Dosage: 10 MILLIGRAM (1 PLAQUETTE)
     Route: 048
     Dates: start: 20220625, end: 20220625
  2. OLANZAPINE [Suspect]
     Active Substance: OLANZAPINE
     Indication: Overdose
  3. METHYLPHENIDATE HYDROCHLORIDE [Suspect]
     Active Substance: METHYLPHENIDATE HYDROCHLORIDE
     Indication: Toxicity to various agents
     Dosage: 10 DOSAGE FORM
     Route: 048
     Dates: start: 20220625, end: 20220625
  4. METHYLPHENIDATE HYDROCHLORIDE [Suspect]
     Active Substance: METHYLPHENIDATE HYDROCHLORIDE
     Indication: Overdose
  5. CYAMEMAZINE [Suspect]
     Active Substance: CYAMEMAZINE
     Indication: Overdose
     Dosage: 10 DOSAGE FORM
     Route: 048
     Dates: start: 20220625, end: 20220625
  6. CYAMEMAZINE [Suspect]
     Active Substance: CYAMEMAZINE
     Indication: Toxicity to various agents

REACTIONS (3)
  - Somnolence [Unknown]
  - Toxicity to various agents [Unknown]
  - Dyskinesia [Unknown]

NARRATIVE: CASE EVENT DATE: 20220625
